FAERS Safety Report 10006440 (Version 1)
Quarter: 2014Q1

REPORT INFORMATION
  Report Type: Spontaneous
  Country: US (occurrence: None)
  Receive Date: 20140312
  Receipt Date: 20140312
  Transmission Date: 20141002
  Serious: Yes (Other)
  Sender: FDA-Public Use
  Company Number: None

PATIENT
  Age: 54 Year
  Sex: Female
  Weight: 54 kg

DRUGS (1)
  1. DULOXETINE [Suspect]
     Indication: FIBROMYALGIA
     Dosage: 30 ONCE DAILY TAKEN BY MOUTH
     Route: 048
     Dates: start: 20140217, end: 20140225

REACTIONS (4)
  - Nervousness [None]
  - Restlessness [None]
  - Insomnia [None]
  - Abnormal dreams [None]
